FAERS Safety Report 9348411 (Version 1)
Quarter: 2013Q2

REPORT INFORMATION
  Report Type: Spontaneous
  Country: US (occurrence: US)
  Receive Date: 20130614
  Receipt Date: 20130614
  Transmission Date: 20140414
  Serious: No
  Sender: FDA-Public Use
  Company Number: US-PFIZER INC-2013177267

PATIENT
  Sex: Female

DRUGS (2)
  1. ADVIL PM [Suspect]
     Indication: NASOPHARYNGITIS
     Dosage: UNK
     Dates: start: 201306
  2. ADVIL PM [Suspect]
     Indication: INSOMNIA

REACTIONS (3)
  - Drug ineffective [Unknown]
  - Overdose [Unknown]
  - Pain [Unknown]
